FAERS Safety Report 11176563 (Version 1)
Quarter: 2015Q2

REPORT INFORMATION
  Report Type: Report from Study
  Country: US (occurrence: US)
  Receive Date: 20150610
  Receipt Date: 20150610
  Transmission Date: 20150821
  Serious: Yes (Other)
  Sender: FDA-Public Use
  Company Number: US-ROCHE-1590334

PATIENT
  Age: 45 Year
  Sex: Female

DRUGS (3)
  1. BEVACIZUMAB [Suspect]
     Active Substance: BEVACIZUMAB
     Indication: CERVIX CARCINOMA
     Dosage: LAST DOSE PRIOR TO SAE ON 03/JAN/2011
     Route: 065
     Dates: start: 20100719
  2. PACLITAXEL. [Suspect]
     Active Substance: PACLITAXEL
     Indication: CERVIX CARCINOMA
     Dosage: CYCLE = 21 DAYS
     Route: 042
     Dates: start: 20100719
  3. LISINOPRIL. [Suspect]
     Active Substance: LISINOPRIL
     Indication: CERVIX CARCINOMA
     Route: 065

REACTIONS (2)
  - Presyncope [Recovered/Resolved]
  - Laceration [Recovered/Resolved]

NARRATIVE: CASE EVENT DATE: 20110108
